FAERS Safety Report 4716439-0 (Version None)
Quarter: 2005Q3

REPORT INFORMATION
  Report Type: 
  Country: None (occurrence: None)
  Receive Date: 20050719
  Receipt Date: 20050707
  Transmission Date: 20060218
  Serious: Yes (Death, Hospitalization, Other)
  Sender: FDA-Public Use
  Company Number: US-JNJFOC-20050401663

PATIENT
  Sex: Female

DRUGS (21)
  1. REMICADE [Suspect]
     Route: 042
  2. REMICADE [Suspect]
     Indication: RHEUMATOID ARTHRITIS
     Dosage: 300 MG EVERY OTHER MONTH
     Route: 042
  3. ACCOLATE [Concomitant]
  4. PREDNISONE [Concomitant]
     Dosage: EVERY OTHER DAY
  5. METHOTREXATE [Concomitant]
  6. NEXIUM [Concomitant]
  7. AXID [Concomitant]
  8. CALCIUM WITH VITAMIN D [Concomitant]
  9. CALCIUM WITH VITAMIN D [Concomitant]
  10. CALCIUM WITH VITAMIN D [Concomitant]
  11. ACTONEL [Concomitant]
     Dosage: WEEKLY
  12. ZOCOR [Concomitant]
  13. PLAVIX [Concomitant]
  14. ASPIRIN [Concomitant]
  15. COMBIVENT [Concomitant]
  16. COMBIVENT [Concomitant]
  17. SEREVENT [Concomitant]
  18. PULMICORT [Concomitant]
  19. LASIX [Concomitant]
  20. ATROVENT [Concomitant]
  21. ALBUTEROL [Concomitant]

REACTIONS (5)
  - ACUTE MYOCARDIAL INFARCTION [None]
  - COLON CANCER STAGE IV [None]
  - CORONARY ARTERY DISEASE [None]
  - DEATH [None]
  - URINARY TRACT INFECTION [None]
